FAERS Safety Report 17018373 (Version 2)
Quarter: 2019Q4

REPORT INFORMATION
  Report Type: Not Available
  Country: US (occurrence: US)
  Receive Date: 20191111
  Receipt Date: 20191127
  Transmission Date: 20200122
  Serious: Yes (Hospitalization, Other)
  Sender: FDA-Public Use
  Company Number: US-NEUROCRINE BIOSCIENCES INC.-2019NBI03271

PATIENT
  Sex: Female

DRUGS (3)
  1. INGREZZA [Suspect]
     Active Substance: VALBENAZINE
     Indication: TARDIVE DYSKINESIA
     Route: 048
     Dates: start: 20190110, end: 20190117
  2. INGREZZA [Suspect]
     Active Substance: VALBENAZINE
     Route: 048
     Dates: start: 20190118, end: 20191022
  3. INGREZZA [Suspect]
     Active Substance: VALBENAZINE
     Dates: start: 2019

REACTIONS (9)
  - Fall [Unknown]
  - Obsessive-compulsive disorder [Unknown]
  - Anxiety [Unknown]
  - Overdose [Unknown]
  - Head injury [Unknown]
  - Withdrawal syndrome [Unknown]
  - Therapeutic product effect incomplete [None]
  - Mental disorder [Unknown]
  - Impulse-control disorder [Unknown]

NARRATIVE: CASE EVENT DATE: 2019
